FAERS Safety Report 9722007 (Version 1)
Quarter: 2013Q4

REPORT INFORMATION
  Report Type: Spontaneous
  Country: US (occurrence: US)
  Receive Date: 20131202
  Receipt Date: 20131202
  Transmission Date: 20140711
  Serious: No
  Sender: FDA-Public Use
  Company Number: US-BIOGENIDEC-2013BI077133

PATIENT
  Sex: Female

DRUGS (20)
  1. TECFIDERA [Suspect]
     Indication: MULTIPLE SCLEROSIS
     Route: 048
     Dates: start: 20130509
  2. TECFIDERA [Suspect]
     Indication: MULTIPLE SCLEROSIS
     Route: 048
     Dates: start: 20130605
  3. ELMIRON [Concomitant]
     Indication: PRODUCT USED FOR UNKNOWN INDICATION
  4. AMBIEN CR [Concomitant]
  5. BUSPIRONE HCL [Concomitant]
  6. DICYCLOMINE HCL [Concomitant]
  7. HYDROCHLORTHIAZIDE [Concomitant]
  8. IRON [Concomitant]
  9. LEXAPRO [Concomitant]
  10. OMEPRAZOLE [Concomitant]
  11. ONDANSETRON [Concomitant]
  12. PROAIR HFA [Concomitant]
  13. SIMVASTATIN [Concomitant]
  14. TRILEPTAL [Concomitant]
  15. TYLENOL [Concomitant]
  16. VERAMYST [Concomitant]
  17. ZANAFLEX [Concomitant]
  18. ZOLPIDEM TARTRATE [Concomitant]
  19. ZYRTEC ALLERGY [Concomitant]
  20. OXCARBAZEPINE [Concomitant]

REACTIONS (6)
  - Dyspnoea [Not Recovered/Not Resolved]
  - Asthenia [Not Recovered/Not Resolved]
  - Pain in extremity [Unknown]
  - Flushing [Not Recovered/Not Resolved]
  - Rash [Not Recovered/Not Resolved]
  - Burning sensation [Unknown]
